FAERS Safety Report 6721381-X (Version None)
Quarter: 2010Q2

REPORT INFORMATION
  Report Type: 
  Country: None (occurrence: None)
  Receive Date: 20100512
  Receipt Date: 20100504
  Transmission Date: 20101027
  Serious: Yes (Life-Threatening, Hospitalization)
  Sender: FDA-Public Use
  Company Number: CH-NAPPMUNDI-DEU-2010-0006225

PATIENT
  Age: 70 Year
  Sex: Male

DRUGS (4)
  1. OXYCODONE HYDROCHLORIDE [Suspect]
     Indication: PAIN
     Dosage: 1200 MG, SINGLE
     Route: 048
     Dates: start: 20100208, end: 20100208
  2. OXYCODONE HYDROCHLORIDE [Suspect]
     Dosage: UNK UNK, UNK
  3. ALCOHOL [Suspect]
     Indication: DRUG ABUSE
     Dosage: 1 BOTTLE, SINGLE
     Dates: start: 20100208, end: 20100208
  4. ANTIDEPRESSANTS [Concomitant]

REACTIONS (4)
  - COMA [None]
  - INTENTIONAL OVERDOSE [None]
  - OXYGEN SATURATION DECREASED [None]
  - SUICIDE ATTEMPT [None]
